FAERS Safety Report 6138313-8 (Version None)
Quarter: 2009Q1

REPORT INFORMATION
  Report Type: 
  Country: None (occurrence: None)
  Receive Date: 20090331
  Receipt Date: 20090320
  Transmission Date: 20090719
  Serious: Yes (Other)
  Sender: FDA-Public Use
  Company Number: CA-JNJFOC-20090306300

PATIENT
  Age: 49 Year
  Sex: Female

DRUGS (2)
  1. REMICADE [Suspect]
     Dosage: INFLIXIMAB STOPPED 3 YEARS AGO
     Route: 042
  2. REMICADE [Suspect]
     Indication: CROHN'S DISEASE
     Dosage: INFLIXIMAB STOPPED 3 YEARS AGO
     Route: 042

REACTIONS (2)
  - LUPUS-LIKE SYNDROME [None]
  - POLYARTHRITIS [None]
